FAERS Safety Report 4688447-X (Version None)
Quarter: 2005Q2

REPORT INFORMATION
  Report Type: 
  Country: None (occurrence: None)
  Receive Date: 20050609
  Receipt Date: 20050527
  Transmission Date: 20051028
  Serious: Yes (Other)
  Sender: FDA-Public Use
  Company Number: 214847

PATIENT
  Age: 51 Year
  Sex: Female
  Weight: 44 kg

DRUGS (7)
  1. RITUXAN [Suspect]
     Indication: NON-HODGKIN'S LYMPHOMA
     Dosage: 510 MG, IV DRIP
     Route: 041
     Dates: start: 20011107, end: 20020219
  2. ONCOVIN [Suspect]
     Indication: NON-HODGKIN'S LYMPHOMA
     Dosage: 1.9MG, INTRAVENOUS
     Route: 042
     Dates: start: 20011109, end: 20020225
  3. DOXORUBICIN HYDROCHLORIDE [Suspect]
     Indication: NON-HODGKIN'S LYMPHOMA
     Dosage: 68 MG, IV DRIP
     Route: 041
     Dates: start: 20011109, end: 20020225
  4. CYCLOPHOSPHAMIDE [Suspect]
     Indication: NON-HODGKIN'S LYMPHOMA
     Dosage: 1020 MG, IV DRIP
     Route: 041
     Dates: start: 20011109, end: 20020225
  5. PREDONINE(PREDNISOLONE ACETATE, PREDNISOLONE, PREDNISOLONE SODIUM SUCC [Suspect]
     Indication: NON-HODGKIN'S LYMPHOMA
     Dosage: 100 MG, ORAL
     Route: 048
     Dates: start: 20011109, end: 20020225
  6. LOXONIN (LOXOPROFEN SODIUM) [Concomitant]
  7. POLARMIN (DEXCHLORPHENIRAMINE MALEATE) [Concomitant]

REACTIONS (1)
  - WHITE BLOOD CELL COUNT DECREASED [None]
